FAERS Safety Report 10806396 (Version 1)
Quarter: 2015Q1

REPORT INFORMATION
  Report Type: Report from Study
  Country: US (occurrence: US)
  Receive Date: 20150217
  Receipt Date: 20150217
  Transmission Date: 20150721
  Serious: No
  Sender: FDA-Public Use
  Company Number: US-ABBVIE-14K-163-1250224-00

PATIENT
  Age: 72 Year
  Sex: Female

DRUGS (5)
  1. TACLONEX [Concomitant]
     Active Substance: BETAMETHASONE DIPROPIONATE\CALCIPOTRIENE\CALCIPOTRIENE HYDRATE
     Indication: PRODUCT USED FOR UNKNOWN INDICATION
  2. PREDNISONE. [Suspect]
     Active Substance: PREDNISONE
     Indication: BRONCHITIS
     Dosage: FOR 7 DAYS
     Dates: start: 201405
  3. HUMIRA [Suspect]
     Active Substance: ADALIMUMAB
     Indication: PSORIASIS
     Dates: start: 20111008, end: 20140420
  4. VACCINE ANTIGRIPAL [Suspect]
     Active Substance: INFLUENZA VIRUS VACCINE
     Indication: INFLUENZA
     Dates: start: 201310, end: 201310
  5. ERYTHROMYCIN. [Suspect]
     Active Substance: ERYTHROMYCIN
     Indication: BRONCHITIS
     Dosage: FOR 7 DAYS
     Dates: start: 201405

REACTIONS (7)
  - Corneal scar [Unknown]
  - Drug ineffective [Unknown]
  - Psoriasis [Unknown]
  - Urinary tract infection [Unknown]
  - Eye infection viral [Unknown]
  - Influenza [Not Recovered/Not Resolved]
  - Bronchitis [Unknown]

NARRATIVE: CASE EVENT DATE: 2013
